FAERS Safety Report 7385080-6 (Version None)
Quarter: 2011Q1

REPORT INFORMATION
  Report Type: 
  Country: None (occurrence: None)
  Receive Date: 20110330
  Receipt Date: 20110321
  Transmission Date: 20110831
  Serious: Yes (Other)
  Sender: FDA-Public Use
  Company Number: IN-ROCHE-766724

PATIENT

DRUGS (1)
  1. BEVACIZUMAB [Suspect]
     Route: 065

REACTIONS (1)
  - TETANY [None]
